FAERS Safety Report 9818115 (Version 1)
Quarter: 2013Q4

REPORT INFORMATION
  Report Type: Spontaneous
  Country: US (occurrence: None)
  Receive Date: 20131223
  Receipt Date: 20131223
  Transmission Date: 20140711
  Serious: Yes (Other)
  Sender: FDA-Public Use
  Company Number: 219934

PATIENT
  Age: 79 Year
  Sex: Female

DRUGS (6)
  1. PICATO [Suspect]
     Indication: SOLAR LENTIGO
     Dosage: (1 IN 1 D), DERM
     Dates: start: 20121212, end: 20121213
  2. NASONEX (MOMETASONE FUROATE) [Concomitant]
  3. ORTHO TRI-CYCLEN (CILEST) [Concomitant]
  4. VALTREX (VALACICLOVIR HYDROCHKOIDE0 [Concomitant]
  5. OXYCODONE (OXYCODONE) [Concomitant]
  6. CIPROFLOXACIN (CIPROFLOXACIN) [Concomitant]

REACTIONS (2)
  - Application site pruritus [None]
  - Temperature intolerance [None]
